FAERS Safety Report 4911933-1 (Version None)
Quarter: 2006Q1

REPORT INFORMATION
  Report Type: 
  Country: None (occurrence: None)
  Receive Date: 20060213
  Receipt Date: 20060213
  Transmission Date: 20060701
  Serious: Yes (Other)
  Sender: FDA-Public Use
  Company Number: None

PATIENT
  Age: 24 Year
  Sex: Male

DRUGS (2)
  1. FOMEPIZOLE    1 GM/ML      ORPHAN MEDICAL [Suspect]
     Indication: CHEMICAL POISONING
     Dosage: 15 MG/ML   LOADING DOSE   IV
     Route: 042
     Dates: start: 20060207, end: 20060207
  2. OMEPRAZOLE     UNKNOWN    MULTIPLE MANUFACTURERS [Suspect]
     Dosage: ONE DOSE  PO
     Route: 048

REACTIONS (2)
  - DRUG PRESCRIBING ERROR [None]
  - WRONG DRUG ADMINISTERED [None]
